FAERS Safety Report 8741024 (Version 3)
Quarter: 2015Q2

REPORT INFORMATION
  Report Type: Spontaneous
  Country: US (occurrence: US)
  Receive Date: 20120824
  Receipt Date: 20150427
  Transmission Date: 20150821
  Serious: No
  Sender: FDA-Public Use
  Company Number: US-ASTRAZENECA-2011SE69148

PATIENT
  Age: 68 Year
  Sex: Female

DRUGS (4)
  1. ADVAIR HFA [Concomitant]
     Active Substance: FLUTICASONE PROPIONATE\SALMETEROL XINAFOATE
  2. PULMICORT FLEXHALER [Suspect]
     Active Substance: BUDESONIDE
     Dosage: 2 PUFFS, TWICE A DAY
     Route: 055
     Dates: start: 201503
  3. NASONEX [Concomitant]
     Active Substance: MOMETASONE FUROATE
     Dates: start: 2013
  4. SYMBICORT [Suspect]
     Active Substance: BUDESONIDE\FORMOTEROL FUMARATE DIHYDRATE
     Indication: ASTHMA
     Dosage: 2 PUFFS TWICE DAILY
     Route: 055
     Dates: start: 20111109, end: 20111112

REACTIONS (6)
  - Wheezing [Unknown]
  - Cardiac fibrillation [Unknown]
  - Discomfort [Unknown]
  - Malaise [Unknown]
  - Atrial fibrillation [Unknown]
  - Palpitations [Unknown]
